FAERS Safety Report 13598870 (Version 1)
Quarter: 2017Q2

REPORT INFORMATION
  Report Type: Spontaneous
  Country: FR (occurrence: FR)
  Receive Date: 20170531
  Receipt Date: 20170531
  Transmission Date: 20170830
  Serious: Yes (Hospitalization)
  Sender: FDA-Public Use
  Company Number: PHHY2017FR077224

PATIENT
  Age: 52 Year
  Sex: Male

DRUGS (7)
  1. NOZINAN [Suspect]
     Active Substance: LEVOMEPROMAZINE
     Indication: SCHIZOPHRENIA
     Dosage: 2 DF, QD (2 PER DAY AT EVENING)
     Route: 048
  2. TRANXENE T-TAB [Suspect]
     Active Substance: CLORAZEPATE DIPOTASSIUM
     Indication: PRODUCT USED FOR UNKNOWN INDICATION
     Dosage: 1 MG, BID
     Route: 048
  3. LIPANTHYL [Suspect]
     Active Substance: FENOFIBRATE
     Indication: HYPERLIPIDAEMIA
     Dosage: 145 MG, QD
     Route: 048
  4. XEPLION [Suspect]
     Active Substance: PALIPERIDONE PALMITATE
     Indication: SCHIZOPHRENIA
     Dosage: 1 DF, UNK
     Route: 030
     Dates: start: 20170422, end: 20170422
  5. TAREG [Suspect]
     Active Substance: VALSARTAN
     Indication: PRODUCT USED FOR UNKNOWN INDICATION
     Dosage: 80 MG, QD
     Route: 048
  6. PARKINANE LP [Suspect]
     Active Substance: TRIHEXYPHENIDYL HYDROCHLORIDE
     Indication: PRODUCT USED FOR UNKNOWN INDICATION
     Dosage: 5 MG, QD
     Route: 048
  7. RISPERDAL CONSTA [Suspect]
     Active Substance: RISPERIDONE
     Indication: SCHIZOPHRENIA
     Dosage: 50 MG, QW2 (EVERY TWO WEEKS)
     Route: 030
     Dates: end: 20170505

REACTIONS (8)
  - Cholelithiasis [None]
  - Pancreatic necrosis [None]
  - Pleural effusion [None]
  - Mesenteric vein thrombosis [None]
  - Pancreatitis acute [Recovering/Resolving]
  - Hypothermia [None]
  - Acidosis [None]
  - Acute kidney injury [None]

NARRATIVE: CASE EVENT DATE: 20170506
